FAERS Safety Report 5621579-8 (Version None)
Quarter: 2008Q1

REPORT INFORMATION
  Report Type: 
  Country: None (occurrence: None)
  Receive Date: 20080211
  Receipt Date: 20080128
  Transmission Date: 20080703
  Serious: Yes (Other)
  Sender: FDA-Public Use
  Company Number: US-ELI_LILLY_AND_COMPANY-US200801005949

PATIENT
  Age: 18 Year
  Sex: Female

DRUGS (3)
  1. STRATTERA [Suspect]
     Indication: ATTENTION DEFICIT/HYPERACTIVITY DISORDER
     Dosage: UNK MG, UNK
  2. STRATTERA [Suspect]
     Dosage: 60 MG, DAILY (1/D)
  3. ESCITALOPRAM [Concomitant]
     Indication: AFFECTIVE DISORDER
     Dosage: 10 MG, DAILY (1/D)

REACTIONS (5)
  - ANXIETY [None]
  - DYSPHORIA [None]
  - IRRITABILITY [None]
  - PANIC ATTACK [None]
  - SUICIDAL IDEATION [None]
